FAERS Safety Report 21159667 (Version 4)
Quarter: 2023Q4

REPORT INFORMATION
  Report Type: Report from Study
  Country: CA (occurrence: CA)
  Receive Date: 20220802
  Receipt Date: 20231010
  Transmission Date: 20240110
  Serious: Yes (Other)
  Sender: FDA-Public Use
  Company Number: CA-TAKEDA-2022TUS036185

PATIENT
  Sex: Male

DRUGS (9)
  1. VEDOLIZUMAB [Suspect]
     Active Substance: VEDOLIZUMAB
     Indication: Crohn^s disease
     Dosage: 300 MILLIGRAM
     Route: 042
     Dates: start: 20160616
  2. HIZENTRA [Concomitant]
     Active Substance: HUMAN IMMUNOGLOBULIN G
     Dosage: 10 MILLILITER, QD
  3. TRAZODONE [Concomitant]
     Active Substance: TRAZODONE HYDROCHLORIDE
     Dosage: 150 MILLIGRAM, QD
  4. ZOPICLONE [Concomitant]
     Active Substance: ZOPICLONE
     Dosage: UNK MILLIGRAM, QD
  5. AMITRIPTYLINE [Concomitant]
     Active Substance: AMITRIPTYLINE
     Dosage: UNK UNK, QD
  6. TRYPTOPHAN [Concomitant]
     Active Substance: TRYPTOPHAN
     Dosage: UNK UNK, QD
  7. LOSEC [Concomitant]
     Active Substance: OMEPRAZOLE
     Dosage: 20 MILLIGRAM, BID
  8. CODEINE SULFATE [Concomitant]
     Active Substance: CODEINE SULFATE
     Dosage: 50 MILLIGRAM, BID
  9. TIAZAC [Concomitant]
     Active Substance: DILTIAZEM HYDROCHLORIDE
     Dosage: 180 MILLIGRAM, BID

REACTIONS (8)
  - Waldenstrom^s macroglobulinaemia [Unknown]
  - Sleep apnoea syndrome [Unknown]
  - Hand fracture [Unknown]
  - Osteoarthritis [Unknown]
  - Drug ineffective [Unknown]
  - Malaise [Unknown]
  - Abdominal pain [Unknown]
  - Diarrhoea [Unknown]
